FAERS Safety Report 25193543 (Version 3)
Quarter: 2025Q2

REPORT INFORMATION
  Report Type: Spontaneous
  Country: AT (occurrence: AT)
  Receive Date: 20250414
  Receipt Date: 20250512
  Transmission Date: 20250716
  Serious: Yes (Hospitalization, Other)
  Sender: ALEXION PHARMACEUTICALS
  Company Number: AT-DSJP-DS-2025-134599-AT

PATIENT
  Age: 66 Year
  Weight: 80 kg

DRUGS (119)
  1. FASLODEX [Suspect]
     Active Substance: FULVESTRANT
     Indication: Breast cancer metastatic
     Dosage: 500 MG, ONCE EVERY 1 MO
     Route: 065
  2. FASLODEX [Suspect]
     Active Substance: FULVESTRANT
     Route: 065
  3. TRASTUZUMAB DERUXTECAN [Suspect]
     Active Substance: TRASTUZUMAB DERUXTECAN
     Indication: Breast cancer metastatic
     Route: 065
  4. TRASTUZUMAB [Suspect]
     Active Substance: TRASTUZUMAB
     Indication: Breast cancer metastatic
     Dosage: 468 MG, QD
     Route: 065
  5. TRASTUZUMAB [Suspect]
     Active Substance: TRASTUZUMAB
     Dosage: 560 MG, ONCE EVERY 3 WK
     Route: 065
  6. TRASTUZUMAB [Suspect]
     Active Substance: TRASTUZUMAB
     Dosage: 540 MG, ONCE EVERY 3 WK
     Route: 065
  7. TRASTUZUMAB [Suspect]
     Active Substance: TRASTUZUMAB
     Dosage: 624 MG, QD
     Route: 065
  8. TRASTUZUMAB [Suspect]
     Active Substance: TRASTUZUMAB
     Dosage: 426 MG, ONCE EVERY 3 WK
     Route: 065
  9. TRASTUZUMAB [Suspect]
     Active Substance: TRASTUZUMAB
     Dosage: 432 MG, QD
     Route: 065
  10. TRASTUZUMAB [Suspect]
     Active Substance: TRASTUZUMAB
     Dosage: 414 MG, ONCE EVERY 3 WK
     Route: 065
  11. TRASTUZUMAB [Suspect]
     Active Substance: TRASTUZUMAB
     Dosage: 408 MG, ONCE EVERY 3 WK
     Route: 065
  12. TRASTUZUMAB [Suspect]
     Active Substance: TRASTUZUMAB
     Route: 065
  13. TRASTUZUMAB [Suspect]
     Active Substance: TRASTUZUMAB
  14. DENOSUMAB [Suspect]
     Active Substance: DENOSUMAB
     Indication: Breast cancer metastatic
     Dosage: 120 MG, ONCE EVERY 4 WK
     Route: 065
  15. PERTUZUMAB [Suspect]
     Active Substance: PERTUZUMAB
     Indication: Breast cancer metastatic
     Dosage: 840 MG, QD (MOST RECENT DOSE PRIOR TO THE EVENT WORSENING OF BRAIN METASTASES: 17MAR2017 MOST RECENT)
     Route: 065
  16. PERTUZUMAB [Suspect]
     Active Substance: PERTUZUMAB
     Dosage: 840 MG, QD
     Route: 065
  17. PERTUZUMAB [Suspect]
     Active Substance: PERTUZUMAB
     Dosage: 840 MG, QD
     Route: 065
  18. PERTUZUMAB [Suspect]
     Active Substance: PERTUZUMAB
     Dosage: 840 MG, QD
     Route: 065
  19. BLEOMYCIN SULFATE [Suspect]
     Active Substance: BLEOMYCIN SULFATE
     Indication: Breast cancer metastatic
     Dosage: 26.85 MG, QD
     Route: 065
  20. BLEOMYCIN SULFATE [Suspect]
     Active Substance: BLEOMYCIN SULFATE
     Indication: HER2 positive breast cancer
     Dosage: 26.85 MG, QD
     Route: 065
  21. BLEOMYCIN SULFATE [Suspect]
     Active Substance: BLEOMYCIN SULFATE
     Dosage: 1 DOSAGE FORM, QD
     Route: 065
  22. CAPECITABINE [Suspect]
     Active Substance: CAPECITABINE
     Indication: Breast cancer metastatic
     Dosage: 2000 MG, QD
     Route: 065
  23. CAPECITABINE [Suspect]
     Active Substance: CAPECITABINE
     Dosage: 3000 MG, QD
     Route: 065
  24. CAPECITABINE [Suspect]
     Active Substance: CAPECITABINE
     Dosage: 3000 MG, QD
     Route: 065
  25. CAPECITABINE [Suspect]
     Active Substance: CAPECITABINE
     Dosage: 3500 MG, QD
     Route: 065
  26. DOCETAXEL [Suspect]
     Active Substance: DOCETAXEL
     Indication: Breast cancer metastatic
     Route: 065
  27. DOCETAXEL [Suspect]
     Active Substance: DOCETAXEL
     Dosage: 190 MG, ONCE EVERY 3 WK
     Route: 065
  28. DOCETAXEL [Suspect]
     Active Substance: DOCETAXEL
     Dosage: 180 MG, ONCE EVERY 3 WK
     Route: 065
  29. DOCETAXEL [Suspect]
     Active Substance: DOCETAXEL
     Dosage: 134.25 MG, ONCE EVERY 3 WK
     Route: 065
  30. DOCETAXEL [Suspect]
     Active Substance: DOCETAXEL
     Route: 065
  31. DOXORUBICIN [Suspect]
     Active Substance: DOXORUBICIN
     Indication: Breast cancer metastatic
     Dosage: 104.400 MG, QD
     Route: 065
  32. VINORELBINE TARTRATE [Suspect]
     Active Substance: VINORELBINE TARTRATE
     Indication: Breast cancer metastatic
     Dosage: 45 MG, ONCE EVERY 3 WK
     Route: 065
  33. TUCATINIB [Suspect]
     Active Substance: TUCATINIB
     Indication: Breast cancer metastatic
     Dosage: 300 MG, BID
     Route: 065
  34. KADCYLA [Suspect]
     Active Substance: ADO-TRASTUZUMAB EMTANSINE
     Indication: Breast cancer metastatic
     Dosage: 270 MG, ONCE EVERY 3 WK
     Route: 065
  35. TYKERB [Suspect]
     Active Substance: LAPATINIB DITOSYLATE
     Indication: Breast cancer metastatic
     Dosage: 1000 MG, QD
     Route: 065
  36. TYKERB [Suspect]
     Active Substance: LAPATINIB DITOSYLATE
     Dosage: 1250 MG, QD
     Route: 065
  37. ADO-TRASTUZUMAB EMTANSINE [Suspect]
     Active Substance: ADO-TRASTUZUMAB EMTANSINE
     Indication: Breast cancer metastatic
     Dosage: 270 MG, ONCE EVERY 3 WK
     Route: 065
  38. LAPATINIB [Suspect]
     Active Substance: LAPATINIB
     Indication: Breast cancer metastatic
     Dosage: 120 MG, QD
     Route: 065
  39. LAPATINIB [Suspect]
     Active Substance: LAPATINIB
     Dosage: 1250 MG, QD
     Route: 065
  40. POLYETHYLENE GLYCOL 3350\POTASSIUM CHLORIDE\SODIUM BICARBONATE\SODIUM [Concomitant]
     Active Substance: POLYETHYLENE GLYCOL 3350\POTASSIUM CHLORIDE\SODIUM BICARBONATE\SODIUM CHLORIDE
     Indication: Product used for unknown indication
     Route: 065
  41. Scottopect [Concomitant]
     Indication: Product used for unknown indication
     Route: 065
  42. Paspertin [Concomitant]
     Indication: Product used for unknown indication
     Route: 065
  43. MORPHINE [Concomitant]
     Active Substance: MORPHINE
     Indication: Product used for unknown indication
     Route: 065
  44. MORPHINE [Concomitant]
     Active Substance: MORPHINE
     Route: 065
  45. MORPHINE [Concomitant]
     Active Substance: MORPHINE
     Route: 065
  46. MORPHINE [Concomitant]
     Active Substance: MORPHINE
     Route: 065
  47. MORPHINE [Concomitant]
     Active Substance: MORPHINE
     Route: 065
  48. ALPRAZOLAM [Concomitant]
     Active Substance: ALPRAZOLAM
     Indication: Product used for unknown indication
     Route: 065
  49. VITAMIN C [Concomitant]
     Active Substance: ASCORBIC ACID
     Indication: Product used for unknown indication
     Route: 065
  50. HYDROMORPHONE HYDROCHLORIDE [Concomitant]
     Active Substance: HYDROMORPHONE HYDROCHLORIDE
     Indication: Product used for unknown indication
     Route: 065
  51. Novalgin [Concomitant]
     Indication: Product used for unknown indication
     Route: 065
  52. Neriforte [Concomitant]
     Indication: Product used for unknown indication
     Route: 065
  53. Cal c vita [Concomitant]
     Indication: Product used for unknown indication
     Route: 065
  54. ZOFRAN [Concomitant]
     Active Substance: ONDANSETRON HYDROCHLORIDE
     Indication: Product used for unknown indication
     Route: 065
  55. Halset [Concomitant]
     Indication: Product used for unknown indication
     Route: 065
  56. EUTHYROX [Concomitant]
     Active Substance: LEVOTHYROXINE SODIUM
     Indication: Product used for unknown indication
     Route: 065
  57. ONDANSETRON [Concomitant]
     Active Substance: ONDANSETRON
     Indication: Product used for unknown indication
     Route: 065
  58. Temesta [Concomitant]
     Indication: Product used for unknown indication
     Route: 065
  59. FENTANYL [Concomitant]
     Active Substance: FENTANYL
     Indication: Product used for unknown indication
     Route: 065
  60. FENTANYL [Concomitant]
     Active Substance: FENTANYL
     Route: 065
  61. FENTANYL [Concomitant]
     Active Substance: FENTANYL
     Route: 065
  62. FENTANYL [Concomitant]
     Active Substance: FENTANYL
     Route: 065
  63. FENTANYL [Concomitant]
     Active Substance: FENTANYL
     Route: 065
  64. ACETAMINOPHEN [Concomitant]
     Active Substance: ACETAMINOPHEN
     Indication: Product used for unknown indication
     Route: 065
  65. BUTYLSCOPOLAMINE BROMIDE [Concomitant]
     Active Substance: BUTYLSCOPOLAMINE BROMIDE
     Indication: Product used for unknown indication
     Route: 065
  66. Oleovit [Concomitant]
     Indication: Product used for unknown indication
     Route: 065
  67. Paracodin [Concomitant]
     Indication: Product used for unknown indication
     Route: 065
  68. PANTOPRAZOLE [Concomitant]
     Active Substance: PANTOPRAZOLE
     Indication: Product used for unknown indication
     Route: 065
  69. Leukichtan [Concomitant]
     Indication: Product used for unknown indication
     Route: 065
  70. DRONABINOL [Concomitant]
     Active Substance: DRONABINOL
     Indication: Product used for unknown indication
     Route: 065
  71. EDOXABAN TOSYLATE [Concomitant]
     Active Substance: EDOXABAN TOSYLATE
     Indication: Product used for unknown indication
     Route: 065
  72. XGEVA [Concomitant]
     Active Substance: DENOSUMAB
     Indication: Product used for unknown indication
     Route: 065
  73. XGEVA [Concomitant]
     Active Substance: DENOSUMAB
     Route: 065
  74. XGEVA [Concomitant]
     Active Substance: DENOSUMAB
     Route: 065
  75. XGEVA [Concomitant]
     Active Substance: DENOSUMAB
     Route: 065
  76. XGEVA [Concomitant]
     Active Substance: DENOSUMAB
     Route: 065
  77. LORAZEPAM [Concomitant]
     Active Substance: LORAZEPAM
     Indication: Product used for unknown indication
     Route: 065
  78. LORAZEPAM [Concomitant]
     Active Substance: LORAZEPAM
     Route: 065
  79. LORAZEPAM [Concomitant]
     Active Substance: LORAZEPAM
     Route: 065
  80. LORAZEPAM [Concomitant]
     Active Substance: LORAZEPAM
     Route: 065
  81. LORAZEPAM [Concomitant]
     Active Substance: LORAZEPAM
     Route: 065
  82. PREGABALIN [Concomitant]
     Active Substance: PREGABALIN
     Indication: Product used for unknown indication
     Route: 065
  83. PREGABALIN [Concomitant]
     Active Substance: PREGABALIN
     Route: 065
  84. PREGABALIN [Concomitant]
     Active Substance: PREGABALIN
     Route: 065
  85. PREGABALIN [Concomitant]
     Active Substance: PREGABALIN
     Route: 065
  86. PREGABALIN [Concomitant]
     Active Substance: PREGABALIN
     Route: 065
  87. ZIEXTENZO [Concomitant]
     Active Substance: PEGFILGRASTIM-BMEZ
     Indication: Product used for unknown indication
     Route: 065
  88. LACTULOSE [Concomitant]
     Active Substance: LACTULOSE
     Indication: Product used for unknown indication
     Route: 065
  89. LACTULOSE [Concomitant]
     Active Substance: LACTULOSE
     Route: 065
  90. LACTULOSE [Concomitant]
     Active Substance: LACTULOSE
     Route: 065
  91. LACTULOSE [Concomitant]
     Active Substance: LACTULOSE
     Route: 065
  92. LACTULOSE [Concomitant]
     Active Substance: LACTULOSE
     Route: 065
  93. BETAMETHASONE DIPROPIONATE [Concomitant]
     Active Substance: BETAMETHASONE DIPROPIONATE
     Indication: Product used for unknown indication
     Route: 065
  94. Ponveridol [Concomitant]
     Indication: Product used for unknown indication
     Route: 065
  95. Ponveridol [Concomitant]
     Route: 065
  96. Ponveridol [Concomitant]
     Route: 065
  97. Ponveridol [Concomitant]
     Route: 065
  98. Ponveridol [Concomitant]
     Route: 065
  99. CARBOXYMETHYLCELLULOSE SODIUM [Concomitant]
     Active Substance: CARBOXYMETHYLCELLULOSE SODIUM
     Indication: Product used for unknown indication
     Route: 065
  100. CARBOXYMETHYLCELLULOSE SODIUM [Concomitant]
     Active Substance: CARBOXYMETHYLCELLULOSE SODIUM
     Route: 065
  101. CARBOXYMETHYLCELLULOSE SODIUM [Concomitant]
     Active Substance: CARBOXYMETHYLCELLULOSE SODIUM
     Route: 065
  102. CARBOXYMETHYLCELLULOSE SODIUM [Concomitant]
     Active Substance: CARBOXYMETHYLCELLULOSE SODIUM
     Route: 065
  103. CARBOXYMETHYLCELLULOSE SODIUM [Concomitant]
     Active Substance: CARBOXYMETHYLCELLULOSE SODIUM
     Route: 065
  104. LOVENOX [Concomitant]
     Active Substance: ENOXAPARIN SODIUM
     Indication: Product used for unknown indication
     Route: 065
  105. LEVOFLOXACIN [Concomitant]
     Active Substance: LEVOFLOXACIN
     Indication: Product used for unknown indication
     Route: 065
  106. MORPHINE SULFATE [Concomitant]
     Active Substance: MORPHINE SULFATE
     Indication: Product used for unknown indication
     Route: 065
  107. MORPHINE SULFATE [Concomitant]
     Active Substance: MORPHINE SULFATE
     Route: 065
  108. MORPHINE SULFATE [Concomitant]
     Active Substance: MORPHINE SULFATE
     Route: 065
  109. MORPHINE SULFATE [Concomitant]
     Active Substance: MORPHINE SULFATE
     Route: 065
  110. MORPHINE SULFATE [Concomitant]
     Active Substance: MORPHINE SULFATE
     Route: 065
  111. Kalioral [Concomitant]
     Indication: Product used for unknown indication
     Route: 065
  112. DEXAMETHASONE [Concomitant]
     Active Substance: DEXAMETHASONE
     Indication: Product used for unknown indication
     Route: 065
  113. SILICON [Concomitant]
     Active Substance: SILICON
     Indication: Product used for unknown indication
     Route: 065
  114. BETAISODONA [Concomitant]
     Active Substance: POVIDONE-IODINE
     Indication: Product used for unknown indication
     Route: 065
  115. CALCIUM CARBONATE\CHOLECALCIFEROL [Concomitant]
     Active Substance: CALCIUM CARBONATE\CHOLECALCIFEROL
     Indication: Product used for unknown indication
     Route: 065
  116. Aceclofenac and paracetamol [Concomitant]
     Indication: Product used for unknown indication
     Route: 065
  117. KCL [Concomitant]
     Active Substance: POTASSIUM CHLORIDE
     Indication: Product used for unknown indication
     Route: 065
  118. TAZOBACTAM [Concomitant]
     Active Substance: TAZOBACTAM
     Indication: Product used for unknown indication
     Route: 065
  119. DOXORUBICIN HYDROCHLORIDE [Suspect]
     Active Substance: DOXORUBICIN HYDROCHLORIDE
     Indication: Breast cancer metastatic
     Dosage: 104.400 MG, QD
     Route: 065

REACTIONS (22)
  - Metastases to central nervous system [Not Recovered/Not Resolved]
  - Metastases to lymph nodes [Not Recovered/Not Resolved]
  - Pseudomonal sepsis [Recovered/Resolved]
  - Sepsis [Recovered/Resolved]
  - Streptococcal sepsis [Recovered/Resolved]
  - Vascular device infection [Recovered/Resolved]
  - Brain oedema [Not Recovered/Not Resolved]
  - C-reactive protein increased [Not Recovered/Not Resolved]
  - Skin fissures [Recovered/Resolved]
  - Varicose vein [Not Recovered/Not Resolved]
  - Nail bed inflammation [Unknown]
  - Eczema [Not Recovered/Not Resolved]
  - Restlessness [Unknown]
  - Nasal mucosal disorder [Recovered/Resolved]
  - Candida infection [Not Recovered/Not Resolved]
  - Back pain [Recovered/Resolved]
  - Vomiting [Recovered/Resolved]
  - Nausea [Recovered/Resolved]
  - Fatigue [Not Recovered/Not Resolved]
  - Paronychia [Recovered/Resolved]
  - Pleural effusion [Recovered/Resolved]
  - Off label use [Unknown]
